FAERS Safety Report 6193560-4 (Version None)
Quarter: 2009Q2

REPORT INFORMATION
  Report Type: 
  Country: None (occurrence: None)
  Receive Date: 20090518
  Receipt Date: 20090505
  Transmission Date: 20091009
  Serious: Yes (Hospitalization, Disabling, Other)
  Sender: FDA-Public Use
  Company Number: US-MERCK-0805USA02791

PATIENT
  Age: 66 Year
  Sex: Female
  Weight: 107 kg

DRUGS (2)
  1. FOSAMAX [Suspect]
     Indication: OSTEOPOROSIS
     Route: 048
     Dates: start: 19960101, end: 20060401
  2. FOSAMAX [Suspect]
     Route: 048
     Dates: start: 19990804, end: 20060101

REACTIONS (51)
  - ABDOMINAL DISCOMFORT [None]
  - ABDOMINAL PAIN [None]
  - ADVERSE DRUG REACTION [None]
  - ADVERSE EVENT [None]
  - ANAEMIA [None]
  - AORTIC STENOSIS [None]
  - ARTHROPATHY [None]
  - ASTHMA [None]
  - BRONCHITIS [None]
  - BRONCHOPNEUMONIA [None]
  - CARDIAC FAILURE CONGESTIVE [None]
  - CARDIAC MURMUR [None]
  - CAROTID BRUIT [None]
  - CATARACT [None]
  - CHRONIC OBSTRUCTIVE PULMONARY DISEASE [None]
  - CONSTIPATION [None]
  - CONTUSION [None]
  - COUGH [None]
  - CYSTITIS [None]
  - DEEP VEIN THROMBOSIS [None]
  - DENTAL CARIES [None]
  - DRUG INEFFECTIVE [None]
  - DRUG INTOLERANCE [None]
  - EAR PAIN [None]
  - FALL [None]
  - FOREIGN BODY TRAUMA [None]
  - GASTROOESOPHAGEAL REFLUX DISEASE [None]
  - GRANULOMA SKIN [None]
  - HAEMATURIA [None]
  - HEADACHE [None]
  - HERNIA [None]
  - HERNIA PAIN [None]
  - HYPERLIPIDAEMIA [None]
  - INFECTION [None]
  - LIMB INJURY [None]
  - MAJOR DEPRESSION [None]
  - NEPHROLITHIASIS [None]
  - OBESITY [None]
  - OEDEMA [None]
  - OEDEMA PERIPHERAL [None]
  - OSTEOARTHRITIS [None]
  - OSTEONECROSIS [None]
  - PNEUMONIA [None]
  - ROAD TRAFFIC ACCIDENT [None]
  - SKIN LESION [None]
  - SPINAL OSTEOARTHRITIS [None]
  - TOOTH ABSCESS [None]
  - TOOTH DISORDER [None]
  - TYPE 2 DIABETES MELLITUS [None]
  - URINARY INCONTINENCE [None]
  - URINARY TRACT INFECTION [None]
